FAERS Safety Report 8584138-3 (Version None)
Quarter: 2012Q3

REPORT INFORMATION
  Report Type: 
  Country: None (occurrence: None)
  Receive Date: 20120810
  Receipt Date: 20120803
  Transmission Date: 20120928
  Serious: Yes (Other)
  Sender: FDA-Public Use
  Company Number: US-009507513-1208USA002896

PATIENT

DRUGS (1)
  1. FOSAMAX [Suspect]
     Indication: GASTROOESOPHAGEAL REFLUX DISEASE
     Dosage: UNK, QW
     Route: 048
     Dates: start: 20080101, end: 20090101

REACTIONS (1)
  - GASTROOESOPHAGEAL REFLUX DISEASE [None]
